FAERS Safety Report 6392725-6 (Version None)
Quarter: 2009Q4

REPORT INFORMATION
  Report Type: 
  Country: None (occurrence: None)
  Receive Date: 20091007
  Receipt Date: 20090911
  Transmission Date: 20100525
  Serious: No
  Sender: FDA-Public Use
  Company Number: US-ALLERGAN-0910798US

PATIENT
  Age: 55 Year
  Sex: Female

DRUGS (2)
  1. LATISSE [Suspect]
     Indication: HYPOTRICHOSIS
     Dosage: UNK, QHS
     Route: 061
  2. LATISSE [Suspect]
     Dosage: UNK, QHS
     Route: 061

REACTIONS (2)
  - BLEPHAROPACHYNSIS [None]
  - SKIN HYPERPIGMENTATION [None]
